FAERS Safety Report 9794843 (Version 2)
Quarter: 2014Q1

REPORT INFORMATION
  Report Type: Spontaneous
  Country: RU (occurrence: RU)
  Receive Date: 20140102
  Receipt Date: 20140129
  Transmission Date: 20141002
  Serious: Yes (Death, Other)
  Sender: FDA-Public Use
  Company Number: RU-009507513-1312RUS012562

PATIENT
  Age: 48 Year
  Sex: Female

DRUGS (3)
  1. SINGULAIR [Suspect]
     Indication: ASTHMA
     Dosage: UNK
     Route: 048
     Dates: start: 20131210
  2. EURESPAL [Concomitant]
     Indication: ASTHMA
  3. BERODUAL [Concomitant]
     Indication: ASTHMA

REACTIONS (3)
  - Completed suicide [Fatal]
  - Pancreatitis [Unknown]
  - Depression [Unknown]
